FAERS Safety Report 23740338 (Version 1)
Quarter: 2024Q2

REPORT INFORMATION
  Report Type: Spontaneous
  Country: FR (occurrence: FR)
  Receive Date: 20240415
  Receipt Date: 20240415
  Transmission Date: 20240716
  Serious: Yes (Other)
  Sender: FDA-Public Use
  Company Number: None

PATIENT
  Age: 30 Year
  Sex: Female
  Weight: 63 kg

DRUGS (4)
  1. PROPOFOL [Suspect]
     Active Substance: PROPOFOL
     Indication: Induction of anaesthesia
     Dosage: 200 MG BEFORE EFFECT, 359 MG IN TOTAL
     Route: 042
     Dates: start: 20191029, end: 20191029
  2. ATRACURIUM [Suspect]
     Active Substance: ATRACURIUM
     Indication: Induction of anaesthesia
     Dosage: 30 MG (MILLIGRAM) AT AN UNSPECIFIED FREQUENCY
     Route: 050
     Dates: start: 20191029, end: 20191029
  3. SUCCINYLCHOLINE CHLORIDE [Suspect]
     Active Substance: SUCCINYLCHOLINE CHLORIDE
     Indication: Induction of anaesthesia
     Dosage: 60 MG (MILLIGRAM) AT AN UNSPECIFIED FREQUENCY
     Route: 065
     Dates: start: 20191029, end: 20191029
  4. SUFENTANIL [Suspect]
     Active Substance: SUFENTANIL
     Indication: Induction of anaesthesia
     Dosage: 20 UG (MICROGRAM) AT AN UNSPECIFIED FREQUENCY
     Route: 042
     Dates: start: 20191029, end: 20191029

REACTIONS (1)
  - Type I hypersensitivity [Recovered/Resolved]

NARRATIVE: CASE EVENT DATE: 20191029
